FAERS Safety Report 4394931-9 (Version None)
Quarter: 2004Q3

REPORT INFORMATION
  Report Type: 
  Country: None (occurrence: None)
  Receive Date: 20040712
  Receipt Date: 20040512
  Transmission Date: 20050211
  Serious: Yes (Other)
  Sender: FDA-Public Use
  Company Number: JP-GLAXOSMITHKLINE-B0332653A

PATIENT
  Age: 56 Year
  Sex: Male
  Weight: 86 kg

DRUGS (3)
  1. VALTREX [Suspect]
     Indication: HERPES ZOSTER
     Dosage: 500MG SEE DOSAGE TEXT
     Route: 048
     Dates: start: 20040422, end: 20040424
  2. ARASENA-A [Concomitant]
     Indication: HERPES ZOSTER
     Route: 061
     Dates: start: 20020422
  3. HEMODIALYSIS [Concomitant]

REACTIONS (7)
  - DELIRIUM [None]
  - MALAISE [None]
  - NAUSEA [None]
  - OVERDOSE [None]
  - RESTLESSNESS [None]
  - SPEECH DISORDER [None]
  - VOMITING [None]
